FAERS Safety Report 8180100-3 (Version None)
Quarter: 2012Q1

REPORT INFORMATION
  Report Type: 
  Country: None (occurrence: None)
  Receive Date: 20120302
  Receipt Date: 20120302
  Transmission Date: 20120608
  Serious: No
  Sender: FDA-Public Use
  Company Number: None

PATIENT
  Age: 23 Year
  Sex: Male
  Weight: 81.646 kg

DRUGS (1)
  1. AMNESTEEM [Suspect]
     Indication: ACNE
     Dosage: 40MG
     Route: 048
     Dates: start: 20111025, end: 20120201

REACTIONS (3)
  - CHEST PAIN [None]
  - GASTRITIS [None]
  - DUODENAL ULCER [None]
